FAERS Safety Report 8066408-0 (Version None)
Quarter: 2012Q1

REPORT INFORMATION
  Report Type: 
  Country: None (occurrence: None)
  Receive Date: 20120124
  Receipt Date: 20120124
  Transmission Date: 20120608
  Serious: No
  Sender: FDA-Public Use
  Company Number: None

PATIENT
  Age: 72 Year
  Sex: Female
  Weight: 61.688 kg

DRUGS (1)
  1. CEFTRIAXONE [Suspect]
     Indication: BACTERAEMIA
     Dosage: 2 GM
     Route: 042
     Dates: start: 20120105, end: 20120109

REACTIONS (4)
  - RASH [None]
  - PRURITUS [None]
  - URTICARIA [None]
  - DIARRHOEA [None]
